FAERS Safety Report 4335700-5 (Version None)
Quarter: 2004Q2

REPORT INFORMATION
  Report Type: 
  Country: None (occurrence: None)
  Receive Date: 20040409
  Receipt Date: 20040311
  Transmission Date: 20050107
  Serious: Yes (Other)
  Sender: FDA-Public Use
  Company Number: AU-GLAXOSMITHKLINE-B0326452A

PATIENT
  Sex: Female
  Weight: 75 kg

DRUGS (2)
  1. ZYBAN [Suspect]
     Indication: EX-SMOKER
     Dosage: 1TAB TWICE PER DAY
     Route: 048
  2. HYDROXYCHLOROQUINE SULPHATE [Concomitant]
     Indication: NEUTROPENIA
     Dosage: 200MG TWICE PER DAY
     Route: 048

REACTIONS (4)
  - AFFECTIVE DISORDER [None]
  - AGGRESSION [None]
  - ANGER [None]
  - HEADACHE [None]
